FAERS Safety Report 5052678-X (Version None)
Quarter: 2006Q3

REPORT INFORMATION
  Report Type: 
  Country: None (occurrence: None)
  Receive Date: 20060714
  Receipt Date: 20060714
  Transmission Date: 20061208
  Serious: No
  Sender: FDA-Public Use
  Company Number: None

PATIENT
  Age: 56 Year
  Sex: Female
  Weight: 61.6892 kg

DRUGS (2)
  1. FENTANYL [Suspect]
     Indication: BACK PAIN
     Dosage: 100 MG Q 2-3 DAY  TOPICAL
     Route: 061
     Dates: start: 20060501
  2. FENTANYL [Suspect]
     Indication: INTERVERTEBRAL DISC DISORDER
     Dosage: 100 MG Q 2-3 DAY  TOPICAL
     Route: 061
     Dates: start: 20060501

REACTIONS (4)
  - DRUG INEFFECTIVE [None]
  - DYSPNOEA [None]
  - INADEQUATE ANALGESIA [None]
  - THERAPEUTIC RESPONSE UNEXPECTED WITH DRUG SUBSTITUTION [None]
